FAERS Safety Report 11855652 (Version 1)
Quarter: 2015Q4

REPORT INFORMATION
  Report Type: Spontaneous
  Country: US (occurrence: None)
  Receive Date: 20151218
  Receipt Date: 20151218
  Transmission Date: 20160305
  Serious: Yes (Other)
  Sender: FDA-Public Use
  Company Number: None

PATIENT
  Age: 49 Year
  Sex: Female

DRUGS (1)
  1. SUSTIVA [Suspect]
     Active Substance: EFAVIRENZ

REACTIONS (2)
  - Neuropathy peripheral [None]
  - Decreased appetite [None]

NARRATIVE: CASE EVENT DATE: 20151216
